FAERS Safety Report 8958777 (Version 1)
Quarter: 2012Q4

REPORT INFORMATION
  Report Type: 
  Country: US (occurrence: US)
  Receive Date: 20121212
  Receipt Date: 20121212
  Transmission Date: 20130627
  Serious: Yes (Hospitalization, Other)
  Sender: FDA-Public Use
  Company Number: US-BAYER-2012-129248

PATIENT
  Age: 20 Year
  Sex: Female

DRUGS (12)
  1. YASMIN [Suspect]
  2. OCELLA [Suspect]
  3. FLUCONAZOLE [Concomitant]
  4. DOXYCYCLINE [Concomitant]
     Dosage: 100 mg, UNK
  5. ACYCLOVIR [ACICLOVIR] [Concomitant]
     Dosage: 200 mg, UNK
  6. OXYCODONE/APAP [Concomitant]
     Dosage: 5-325 mg
  7. SULFAMETHOXAZOLE W/TRIMETHOPRIM [Concomitant]
  8. HYDROCODONE W/APAP [Concomitant]
     Dosage: 5-500 mg
  9. ADVAIR DISKUS [Concomitant]
     Indication: ASTHMA
     Dosage: Daily
  10. ALBUTEROL [Concomitant]
     Indication: ASTHMA
     Dosage: Daily and p.r.n.
  11. ADDERALL [Concomitant]
     Indication: ATTENTION DEFICIT/HYPERACTIVITY DISORDER
     Dosage: 20 mg, daily
     Route: 048
  12. IBUPROFEN [Concomitant]

REACTIONS (2)
  - Pulmonary embolism [None]
  - Deep vein thrombosis [None]
